FAERS Safety Report 5240498-2 (Version None)
Quarter: 2007Q1

REPORT INFORMATION
  Report Type: 
  Country: None (occurrence: None)
  Receive Date: 20070219
  Receipt Date: 20070207
  Transmission Date: 20070707
  Serious: Yes (Hospitalization)
  Sender: FDA-Public Use
  Company Number: FR-GLAXOSMITHKLINE-B0457405A

PATIENT
  Age: 76 Year
  Sex: Female

DRUGS (6)
  1. ARIXTRA [Suspect]
     Indication: DEEP VEIN THROMBOSIS
     Dosage: 7.5MG PER DAY
     Route: 058
     Dates: start: 20060830, end: 20060908
  2. INNOHEP [Suspect]
     Indication: DEEP VEIN THROMBOSIS
     Route: 058
     Dates: start: 20060909, end: 20060910
  3. VERAPAMIL [Concomitant]
     Indication: ANGINA PECTORIS
     Dosage: 240MG PER DAY
     Route: 048
  4. ACETAMINOPHEN [Concomitant]
     Indication: ARTHROPATHY
     Dosage: 500MG PER DAY
     Route: 048
  5. VASTAREL [Concomitant]
     Indication: ANGINA PECTORIS
     Dosage: 60MG PER DAY
     Route: 048
  6. CHONDROSULF [Concomitant]
     Indication: ARTHROPATHY
     Dosage: 800MG PER DAY
     Route: 048

REACTIONS (3)
  - DRUG INTERACTION [None]
  - MUSCLE HAEMORRHAGE [None]
  - PAIN IN EXTREMITY [None]
